FAERS Safety Report 9440615 (Version 1)
Quarter: 2013Q3

REPORT INFORMATION
  Report Type: Spontaneous
  Country: US (occurrence: US)
  Receive Date: 20130805
  Receipt Date: 20130805
  Transmission Date: 20140515
  Serious: Yes (Death)
  Sender: FDA-Public Use
  Company Number: US-ACTELION-A-NJ2013-86509

PATIENT
  Age: 47 Year
  Sex: Male

DRUGS (1)
  1. TRACLEER [Suspect]
     Indication: HEART DISEASE CONGENITAL
     Dosage: UNK
     Route: 048

REACTIONS (1)
  - Death [Fatal]
